FAERS Safety Report 18156283 (Version 1)
Quarter: 2020Q3

REPORT INFORMATION
  Report Type: Spontaneous
  Country: US (occurrence: US)
  Receive Date: 20200815
  Receipt Date: 20200815
  Transmission Date: 20201103
  Serious: Yes (Other)
  Sender: FDA-Public Use
  Company Number: None

PATIENT
  Age: 51 Year
  Sex: Male
  Weight: 99 kg

DRUGS (14)
  1. DOK [Concomitant]
     Active Substance: DOCUSATE SODIUM
  2. TYLENOL [Concomitant]
     Active Substance: ACETAMINOPHEN
  3. IBUPROFEN. [Concomitant]
     Active Substance: IBUPROFEN
  4. CAPECITABINE. [Suspect]
     Active Substance: CAPECITABINE
     Indication: RECTAL CANCER
     Route: 048
     Dates: start: 20191102
  5. AVASTIN [Concomitant]
     Active Substance: BEVACIZUMAB
  6. TRANSDERM [Concomitant]
  7. IRINOTECAN [Concomitant]
     Active Substance: IRINOTECAN
  8. LORAZEPAM. [Concomitant]
     Active Substance: LORAZEPAM
  9. TRAMADOL. [Concomitant]
     Active Substance: TRAMADOL
  10. ALBUTEROL. [Concomitant]
     Active Substance: ALBUTEROL
  11. DEXAMETHASONE. [Concomitant]
     Active Substance: DEXAMETHASONE
  12. ZOFRAN [Concomitant]
     Active Substance: ONDANSETRON HYDROCHLORIDE
  13. ACIDOPHILUS [Concomitant]
     Active Substance: LACTOBACILLUS ACIDOPHILUS
  14. COMPAZINE [Concomitant]
     Active Substance: PROCHLORPERAZINE MALEATE

REACTIONS (2)
  - Disease progression [None]
  - Therapy interrupted [None]

NARRATIVE: CASE EVENT DATE: 20200815
